FAERS Safety Report 6393951-2 (Version None)
Quarter: 2009Q4

REPORT INFORMATION
  Report Type: 
  Country: None (occurrence: None)
  Receive Date: 20091008
  Receipt Date: 20091002
  Transmission Date: 20100525
  Serious: Yes (Hospitalization, Other)
  Sender: FDA-Public Use
  Company Number: US-AMGEN-QUU367349

PATIENT
  Sex: Male

DRUGS (1)
  1. ARANESP [Suspect]
     Indication: ANAEMIA
     Route: 058

REACTIONS (3)
  - BLOOD CREATININE INCREASED [None]
  - MALAISE [None]
  - THERAPEUTIC RESPONSE DECREASED [None]
